FAERS Safety Report 6369214-8 (Version None)
Quarter: 2009Q3

REPORT INFORMATION
  Report Type: 
  Country: None (occurrence: None)
  Receive Date: 20090922
  Receipt Date: 20090910
  Transmission Date: 20100115
  Serious: Yes (Death)
  Sender: FDA-Public Use
  Company Number: JP-ABBOTT-09P-087-0598515-00

PATIENT
  Age: 38 Year
  Sex: Female

DRUGS (5)
  1. LEUPLIN SR FOR INJECTION 11.25 MG [Suspect]
     Indication: BREAST CANCER
     Route: 058
     Dates: start: 20070511, end: 20080707
  2. ARIMIDEX [Concomitant]
     Indication: BREAST CANCER
     Route: 048
     Dates: end: 20080714
  3. TIZANIDINE HCL [Concomitant]
     Indication: HEADACHE
     Route: 048
     Dates: start: 20080701, end: 20080714
  4. RHYTHMY [Concomitant]
     Indication: INSOMNIA
     Route: 048
     Dates: start: 20080701, end: 20080707
  5. XELODA [Concomitant]
     Indication: BREAST CANCER
     Route: 048
     Dates: start: 20080624, end: 20080714

REACTIONS (2)
  - CARDIAC TAMPONADE [None]
  - HEPATIC FUNCTION ABNORMAL [None]
